FAERS Safety Report 15710277 (Version 1)
Quarter: 2018Q4

REPORT INFORMATION
  Report Type: Spontaneous
  Country: FR (occurrence: FR)
  Receive Date: 20181211
  Receipt Date: 20181211
  Transmission Date: 20190205
  Serious: Yes (Death, Other)
  Sender: FDA-Public Use
  Company Number: FR-EXELIXIS-CABO-18017532

PATIENT
  Age: 65 Year
  Sex: Male

DRUGS (4)
  1. CABOMETYX [Suspect]
     Active Substance: CABOZANTINIB S-MALATE
     Indication: RENAL CANCER
     Dosage: UNK
     Route: 048
  2. CORTANCYL [Concomitant]
     Active Substance: PREDNISONE
     Dosage: 30 MG, QD
     Route: 048
  3. DUROGESIC [Concomitant]
     Active Substance: FENTANYL
     Dosage: UNK
     Route: 062
  4. LOVENOX [Concomitant]
     Active Substance: ENOXAPARIN SODIUM
     Dosage: 2 DF, QD
     Route: 058

REACTIONS (4)
  - Peritonitis [Recovering/Resolving]
  - Peritoneal haemorrhage [Fatal]
  - Diverticulitis [Recovered/Resolved]
  - Diverticular perforation [Recovered/Resolved]

NARRATIVE: CASE EVENT DATE: 20180925
